FAERS Safety Report 7508113-2 (Version None)
Quarter: 2011Q2

REPORT INFORMATION
  Report Type: 
  Country: None (occurrence: None)
  Receive Date: 20110527
  Receipt Date: 20110513
  Transmission Date: 20111010
  Serious: Yes (Hospitalization, Other)
  Sender: FDA-Public Use
  Company Number: US-BAYER-201037760NA

PATIENT
  Age: 47 Year
  Sex: Female
  Weight: 81.633 kg

DRUGS (33)
  1. LEVOXYL [Concomitant]
     Indication: THYROID DISORDER
     Dosage: 0.175 MG, QD
     Route: 048
     Dates: start: 19980101
  2. SYMAX [Concomitant]
     Dosage: 125 MG, TID
  3. METHYLSULFONYLMETHANE [Concomitant]
     Dosage: 500 MG, QD
  4. LISINOPRIL [Concomitant]
     Dosage: 5 MG, QD
  5. ACIDOPHILUS [Concomitant]
     Dosage: UNK UNK, BID
     Route: 048
  6. DIFLUCAN [Concomitant]
     Dosage: 100 MG, QD
     Route: 048
     Dates: start: 20080901
  7. LOVASTATIN [Concomitant]
     Indication: THYROID DISORDER
     Dosage: 40 MG, QD
     Route: 048
     Dates: start: 19980101
  8. MULTIVITAMIN PREPARATION + MINERAL SUPPLEMENT [Concomitant]
     Dosage: UNK UNK, QD
     Route: 048
  9. PROVENTIL-HFA [Concomitant]
     Dosage: 10 MG, QD
     Route: 048
  10. LEVOFLOXACIN [Concomitant]
     Dosage: 500 MG, QD
  11. COQ10 [Concomitant]
     Dosage: UNK
     Route: 048
     Dates: start: 20080901
  12. LEXISCAN [Concomitant]
     Dosage: 0.4 MG, UNK
     Route: 042
     Dates: start: 20080901
  13. POTASSIUM CHLORIDE [Concomitant]
     Dosage: UNK
     Route: 048
     Dates: start: 20080901
  14. YAZ [Suspect]
     Indication: PRODUCT USED FOR UNKNOWN INDICATION
     Dosage: UNK UNK, UNK
     Route: 048
     Dates: start: 20060101, end: 20081029
  15. SIX AND NINE FATTY ACIDS [Concomitant]
  16. NEXIUM [Concomitant]
     Dosage: 40 MG, UNK
     Route: 042
     Dates: start: 20080901
  17. SYNTHROID [Concomitant]
     Dosage: 0.15 MG, QD
     Route: 048
     Dates: start: 20080901
  18. NEUTRA-PHOS [Concomitant]
     Dosage: UNK
     Route: 048
     Dates: start: 20080901
  19. LEVSIN [Concomitant]
     Dosage: 0.125 UNK, UNK
  20. PEPCID [Concomitant]
     Dosage: 20 MG, QD
     Dates: start: 20080901
  21. LOMOTIL [DIPHENOXYLATE HYDROCHLORIDE] [Concomitant]
     Dosage: 2 TABLETS EVERY 6 HOUR
     Dates: start: 20081001
  22. FISH OIL [Concomitant]
     Dosage: UNK UNK, QD
     Route: 048
  23. LOVAZA [Concomitant]
     Dosage: UNK UNK, QD
     Route: 048
  24. LEVOFLOXACIN [Concomitant]
     Dosage: 75 MG, QD
     Dates: start: 20080901
  25. MAG-OX [Concomitant]
     Dosage: 800 MG, QD
     Dates: start: 20080901
  26. GLUCOSAMINE W/CHONDROITIN SULFATE [Concomitant]
     Dosage: 1200 MG, QD
     Route: 048
  27. ZOFRAN [Concomitant]
     Dosage: 4 MG, EVERY 6 HOURS, AS NEEDED
     Route: 042
     Dates: start: 20080901
  28. PROBIOTICA [Concomitant]
     Dosage: UNK
     Route: 048
     Dates: start: 20080901
  29. ANUSOL HC [Concomitant]
     Dosage: UNK UNK, BID
  30. FLAGYL [Concomitant]
     Dosage: 500 MG, TID
     Dates: start: 20080901
  31. MORHINE SULFATE [Concomitant]
     Dosage: UNK
     Dates: start: 20080901
  32. MAXIDEX [Concomitant]
  33. ZESTRIL [Concomitant]
     Dosage: 10 MG, QD
     Dates: start: 20080901

REACTIONS (4)
  - GAIT DISTURBANCE [None]
  - PAIN IN EXTREMITY [None]
  - DEEP VEIN THROMBOSIS [None]
  - OEDEMA PERIPHERAL [None]
